FAERS Safety Report 8513344-9 (Version None)
Quarter: 2012Q3

REPORT INFORMATION
  Report Type: 
  Country: None (occurrence: None)
  Receive Date: 20120716
  Receipt Date: 20120709
  Transmission Date: 20120928
  Serious: Yes (Other)
  Sender: FDA-Public Use
  Company Number: GB-TEVA-347446ISR

PATIENT

DRUGS (1)
  1. LACTULOSE [Suspect]
     Dosage: 3.3G/5ML
     Route: 048

REACTIONS (3)
  - HYPERSENSITIVITY [None]
  - BRONCHOSPASM [None]
  - ANGIOEDEMA [None]
